FAERS Safety Report 14027352 (Version 1)
Quarter: 2017Q3

REPORT INFORMATION
  Report Type: Spontaneous
  Country: US (occurrence: US)
  Receive Date: 20170929
  Receipt Date: 20170929
  Transmission Date: 20171128
  Serious: Yes (Life-Threatening)
  Sender: FDA-Public Use
  Company Number: US-CHIESI USA INC-US-CHSI-17-00046

PATIENT
  Age: 84 Year
  Sex: Male

DRUGS (2)
  1. KENGREAL [Suspect]
     Active Substance: CANGRELOR
     Indication: CATHETERISATION CARDIAC
     Dosage: 30 MCG/KG
     Route: 040
     Dates: start: 20170706
  2. KENGREAL [Suspect]
     Active Substance: CANGRELOR
     Indication: ANGIOPLASTY
     Dosage: 4 MCG/KG/MIN
     Route: 041
     Dates: start: 20170706

REACTIONS (2)
  - Ventricular fibrillation [Recovered/Resolved]
  - Cardiac arrest [Recovered/Resolved]

NARRATIVE: CASE EVENT DATE: 20170706
